FAERS Safety Report 8108319-8 (Version None)
Quarter: 2012Q1

REPORT INFORMATION
  Report Type: 
  Country: None (occurrence: None)
  Receive Date: 20120202
  Receipt Date: 20120123
  Transmission Date: 20120608
  Serious: Yes (Hospitalization, Other)
  Sender: FDA-Public Use
  Company Number: PHHY2012FR007107

PATIENT
  Sex: Male

DRUGS (15)
  1. ANGIOTENSIN II ANTAGONISTS [Concomitant]
  2. ANTIHYPERTENSIVES [Concomitant]
  3. CALCIUM CHANNEL BLOCKERS [Concomitant]
  4. AMIODARONE HCL [Concomitant]
  5. TRANDOLAPRIL [Concomitant]
     Indication: HYPERTENSION
     Dosage: 4 MG,IN THE MORNING
     Route: 048
     Dates: start: 20110106
  6. STATINS [Concomitant]
  7. ISOSORBIDE DINITRATE [Concomitant]
  8. LASIX [Concomitant]
     Indication: HYPERTENSION
     Dosage: 125 MG, IN THE MORNING
     Route: 048
     Dates: start: 20100701
  9. INSULIN [Concomitant]
     Dates: start: 20060101
  10. ALISKIREN [Suspect]
     Indication: HYPERTENSION
     Dosage: 150 MG, DAILY
  11. ALISKIREN [Suspect]
     Indication: DIABETES MELLITUS
     Dosage: 300 MG, DAILY
  12. ALISKIREN [Suspect]
     Indication: PROTEINURIA
     Dosage: 150 MG, QD
     Dates: end: 20120111
  13. LERCANIDIPINE [Concomitant]
     Indication: HYPERTENSION
     Dosage: 20 MG,IN THE EVENING
     Route: 048
     Dates: start: 20100703
  14. LOOP DIURETICS [Concomitant]
  15. BETA BLOCKING AGENTS [Concomitant]

REACTIONS (6)
  - CARDIAC FAILURE ACUTE [None]
  - ATRIAL FIBRILLATION [None]
  - HYPERTENSION [None]
  - BLOOD PRESSURE DIASTOLIC DECREASED [None]
  - BLOOD CREATININE INCREASED [None]
  - GLYCOSYLATED HAEMOGLOBIN INCREASED [None]
